FAERS Safety Report 11515483 (Version 1)
Quarter: 2015Q3

REPORT INFORMATION
  Report Type: Spontaneous
  Country: IT (occurrence: IT)
  Receive Date: 20150916
  Receipt Date: 20150916
  Transmission Date: 20151125
  Serious: Yes (Other)
  Sender: FDA-Public Use
  Company Number: PHHY2015IT110205

PATIENT
  Age: 22 Year
  Sex: Female

DRUGS (2)
  1. PARACETAMOL [Suspect]
     Active Substance: ACETAMINOPHEN
     Indication: TONSILLITIS
     Dosage: 500 MG, ONCE/SINGLE
     Route: 048
     Dates: start: 20150612, end: 20150612
  2. ZITHROMAX [Suspect]
     Active Substance: AZITHROMYCIN DIHYDRATE
     Indication: TONSILLITIS
     Dosage: 1 DF, ONCE/SINGLE
     Route: 048
     Dates: start: 20150612, end: 20150612

REACTIONS (3)
  - Vomiting [Recovering/Resolving]
  - Erythema [Recovering/Resolving]
  - Nausea [Recovering/Resolving]

NARRATIVE: CASE EVENT DATE: 20150612
